FAERS Safety Report 8614352-X (Version None)
Quarter: 2012Q3

REPORT INFORMATION
  Report Type: 
  Country: None (occurrence: None)
  Receive Date: 20120823
  Receipt Date: 20120814
  Transmission Date: 20120928
  Serious: Yes (Hospitalization)
  Sender: FDA-Public Use
  Company Number: JP-NOVOPROD-355329

PATIENT
  Age: 15 Year
  Sex: Female
  Weight: 48 kg

DRUGS (2)
  1. NOVOLIN N [Suspect]
     Indication: TYPE 1 DIABETES MELLITUS
     Dosage: 600 U, QD
     Route: 058
     Dates: start: 20120103
  2. NOVOLIN R [Suspect]
     Indication: TYPE 1 DIABETES MELLITUS
     Dosage: 360 U, QD
     Route: 058
     Dates: start: 20120103

REACTIONS (2)
  - INTENTIONAL OVERDOSE [None]
  - HYPOGLYCAEMIA [None]
